FAERS Safety Report 19020422 (Version 1)
Quarter: 2021Q1

REPORT INFORMATION
  Report Type: Spontaneous
  Country: US (occurrence: US)
  Receive Date: 20210317
  Receipt Date: 20210317
  Transmission Date: 20210420
  Serious: Yes (Death, Hospitalization)
  Sender: FDA-Public Use
  Company Number: US-UPSHER-SMITH LABORATORIES, LLC-2021USL00195

PATIENT
  Sex: Female

DRUGS (4)
  1. UNSPECIFIED MEDICATIONS [Suspect]
     Active Substance: UNSPECIFIED INGREDIENT
     Indication: RESPIRATORY FAILURE
     Dosage: UNK
     Dates: start: 201608, end: 201608
  2. UNSPECIFIED MEDICATIONS [Suspect]
     Active Substance: UNSPECIFIED INGREDIENT
     Indication: ACUTE KIDNEY INJURY
  3. UNSPECIFIED MEDICATIONS [Suspect]
     Active Substance: UNSPECIFIED INGREDIENT
     Indication: UNEVALUABLE EVENT
  4. AMIODARONE HYDROCHLORIDE. [Suspect]
     Active Substance: AMIODARONE HYDROCHLORIDE
     Indication: ATRIAL FIBRILLATION
     Dosage: UNK
     Route: 048
     Dates: start: 201607, end: 2016

REACTIONS (11)
  - Fatigue [Unknown]
  - Asthenia [Unknown]
  - Off label use [Unknown]
  - Wheezing [Unknown]
  - Cough [Unknown]
  - Oedema [Unknown]
  - Gait disturbance [Unknown]
  - Respiratory failure [Fatal]
  - Unevaluable event [Unknown]
  - Weight decreased [Unknown]
  - Acute kidney injury [Fatal]

NARRATIVE: CASE EVENT DATE: 201607
